FAERS Safety Report 11832443 (Version 2)
Quarter: 2016Q1

REPORT INFORMATION
  Report Type: Spontaneous
  Country: US (occurrence: US)
  Receive Date: 20151214
  Receipt Date: 20160303
  Transmission Date: 20160525
  Serious: Yes (Hospitalization)
  Sender: FDA-Public Use
  Company Number: US-PFIZER INC-2015420424

PATIENT
  Age: 54 Year
  Sex: Female
  Weight: 98.78 kg

DRUGS (2)
  1. IBRANCE [Suspect]
     Active Substance: PALBOCICLIB
     Indication: BREAST CANCER METASTATIC
     Dosage: 125 MG, CYCLIC (125 MG DAILY X 21DAYS REST 7 DAYS)
     Route: 048
     Dates: start: 20150929, end: 20151229
  2. FEMARA [Concomitant]
     Active Substance: LETROZOLE
     Dosage: UNK
     Dates: start: 20150929

REACTIONS (4)
  - Disease progression [Unknown]
  - Breast cancer [Unknown]
  - Headache [Recovered/Resolved]
  - Acute sinusitis [Unknown]

NARRATIVE: CASE EVENT DATE: 20151201
